FAERS Safety Report 16893665 (Version 5)
Quarter: 2020Q1

REPORT INFORMATION
  Report Type: Spontaneous
  Country: RO (occurrence: RO)
  Receive Date: 20191008
  Receipt Date: 20200213
  Transmission Date: 20200409
  Serious: Yes (Hospitalization, Other)
  Sender: FDA-Public Use
  Company Number: RO-PFIZER INC-2019405841

PATIENT
  Age: 58 Year
  Sex: Male
  Weight: 65 kg

DRUGS (1)
  1. SUTENT [Suspect]
     Active Substance: SUNITINIB MALATE
     Indication: METASTATIC RENAL CELL CARCINOMA
     Dosage: 50 MG, CYCLIC (4 WEEKS ON TREATMENT WITH 2 WEEKS PAUSE)
     Route: 048
     Dates: start: 20180404, end: 20191224

REACTIONS (4)
  - Oesophageal neoplasm [Recovering/Resolving]
  - Anaemia [Recovering/Resolving]
  - Second primary malignancy [Recovering/Resolving]
  - Varices oesophageal [Recovering/Resolving]

NARRATIVE: CASE EVENT DATE: 20190908
